FAERS Safety Report 7923172 (Version 2)
Quarter: 2012Q4

REPORT INFORMATION
  Report Type: 
  Country: US (occurrence: US)
  Receive Date: 20110429
  Receipt Date: 20120921
  Transmission Date: 20130627
  Serious: No
  Sender: FDA-Public Use
  Company Number: US-ASTRAZENECA-2010SE28939

PATIENT
  Age: 83 Year
  Sex: Female

DRUGS (1)
  1. NEXIUM [Suspect]
     Route: 048
     Dates: start: 20110103

REACTIONS (12)
  - Jaw disorder [Unknown]
  - Respiratory disorder [Unknown]
  - Dysgraphia [Unknown]
  - Visual impairment [Unknown]
  - Dyspepsia [Unknown]
  - Throat irritation [Unknown]
  - Pain in extremity [Unknown]
  - Fall [Unknown]
  - Skin fissures [Unknown]
  - Infection [Unknown]
  - Limb malformation [Unknown]
  - Drug dose omission [Unknown]
